FAERS Safety Report 18215985 (Version 1)
Quarter: 2020Q3

REPORT INFORMATION
  Report Type: Spontaneous
  Country: US (occurrence: US)
  Receive Date: 20200901
  Receipt Date: 20200901
  Transmission Date: 20201103
  Serious: No
  Sender: FDA-Public Use
  Company Number: US-TOLMAR, INC.-20US022532

PATIENT
  Sex: Male

DRUGS (3)
  1. ELIGARD [Suspect]
     Active Substance: LEUPROLIDE ACETATE
     Dosage: 30 MG, Q 4 MONTH
     Route: 065
     Dates: start: 20200430, end: 20200430
  2. ELIGARD [Suspect]
     Active Substance: LEUPROLIDE ACETATE
     Dosage: 30 MG, Q 4 MONTH
     Route: 065
     Dates: start: 201912
  3. ELIGARD [Suspect]
     Active Substance: LEUPROLIDE ACETATE
     Indication: PROSTATE CANCER
     Dosage: 30 MG, Q 4 MONTH
     Route: 065
     Dates: start: 201907

REACTIONS (4)
  - Micturition urgency [Not Recovered/Not Resolved]
  - Pollakiuria [Not Recovered/Not Resolved]
  - Loss of libido [Not Recovered/Not Resolved]
  - Fatigue [Not Recovered/Not Resolved]
